FAERS Safety Report 6566083-8 (Version None)
Quarter: 2010Q1

REPORT INFORMATION
  Report Type: 
  Country: None (occurrence: None)
  Receive Date: 20100202
  Receipt Date: 20100126
  Transmission Date: 20100710
  Serious: Yes (Other)
  Sender: FDA-Public Use
  Company Number: US-RB-001843-10

PATIENT
  Age: 4 Year
  Sex: Male
  Weight: 18 kg

DRUGS (1)
  1. DELSYM CHILDREN'S COUGH SYRUP [Suspect]
     Indication: COUGH
     Dosage: 2.5ML TAKEN ONCE A DAY
     Route: 048
     Dates: start: 20100123

REACTIONS (4)
  - BRUXISM [None]
  - INSOMNIA [None]
  - MYDRIASIS [None]
  - PSYCHOMOTOR HYPERACTIVITY [None]
